FAERS Safety Report 13930370 (Version 1)
Quarter: 2017Q3

REPORT INFORMATION
  Report Type: Spontaneous
  Country: DE (occurrence: DE)
  Receive Date: 20170901
  Receipt Date: 20170901
  Transmission Date: 20171127
  Serious: Yes (Death, Life-Threatening, Hospitalization)
  Sender: FDA-Public Use
  Company Number: DE-CELGENEUS-DEU-20170807482

PATIENT
  Age: 74 Year
  Sex: Male

DRUGS (3)
  1. BRENTUXIMAB VEDOTIN [Concomitant]
     Active Substance: BRENTUXIMAB VEDOTIN
     Indication: PLASMABLASTIC LYMPHOMA
     Route: 065
  2. REVLIMID [Suspect]
     Active Substance: LENALIDOMIDE
     Indication: OFF LABEL USE
  3. REVLIMID [Suspect]
     Active Substance: LENALIDOMIDE
     Indication: PLASMABLASTIC LYMPHOMA
     Dosage: 15 MILLIGRAM
     Route: 048
     Dates: start: 20150922, end: 20150930

REACTIONS (4)
  - Oesophageal rupture [Fatal]
  - Cough [Not Recovered/Not Resolved]
  - Tracheo-oesophageal fistula [Not Recovered/Not Resolved]
  - Respiratory failure [Fatal]

NARRATIVE: CASE EVENT DATE: 20150930
